FAERS Safety Report 6723075-3 (Version None)
Quarter: 2010Q2

REPORT INFORMATION
  Report Type: 
  Country: None (occurrence: None)
  Receive Date: 20100513
  Receipt Date: 20100429
  Transmission Date: 20101027
  Serious: Yes (Life-Threatening)
  Sender: FDA-Public Use
  Company Number: GB-RANBAXY-2010RR-33622

PATIENT
  Age: 42 Year
  Sex: Male
  Weight: 85.73 kg

DRUGS (2)
  1. IBUPROFEN [Suspect]
     Indication: ANALGESIC THERAPY
     Dosage: UNK
     Route: 048
     Dates: start: 20100422, end: 20100423
  2. PANADOL [Concomitant]

REACTIONS (1)
  - ANAPHYLACTIC REACTION [None]
